FAERS Safety Report 6396949-3 (Version None)
Quarter: 2009Q4

REPORT INFORMATION
  Report Type: 
  Country: None (occurrence: None)
  Receive Date: 20091012
  Receipt Date: 20090824
  Transmission Date: 20100525
  Serious: No
  Sender: FDA-Public Use
  Company Number: US-BAYER-200931383NA

PATIENT
  Age: 38 Year
  Sex: Female

DRUGS (2)
  1. YAZ [Suspect]
     Indication: POLYMENORRHOEA
     Dates: start: 20081001
  2. ANOTHER BIRTH CONTROL [Concomitant]

REACTIONS (1)
  - MENSTRUATION DELAYED [None]
